FAERS Safety Report 8780565 (Version 1)
Quarter: 2012Q4

REPORT INFORMATION
  Report Type: 
  Country: US (occurrence: US)
  Receive Date: 20120913
  Receipt Date: 20120913
  Transmission Date: 20130627
  Serious: No
  Sender: FDA-Public Use
  Company Number: US-PFIZER INC-2012226057

PATIENT
  Age: 24 Year
  Sex: Male
  Weight: 81.63 kg

DRUGS (3)
  1. CHANTIX [Suspect]
     Indication: SMOKING CESSATION THERAPY
     Dosage: 0.5 mg, 1x/day
     Route: 048
     Dates: start: 20120906, end: 201209
  2. CHANTIX [Suspect]
     Dosage: 0.5 mg, 2x/day
     Route: 048
     Dates: start: 201209
  3. LISINOPRIL [Concomitant]
     Indication: HYPERTENSION
     Dosage: UNK
     Dates: start: 20120902

REACTIONS (5)
  - Nausea [Not Recovered/Not Resolved]
  - Mood altered [Not Recovered/Not Resolved]
  - Emotional disorder [Not Recovered/Not Resolved]
  - Anger [Not Recovered/Not Resolved]
  - Abnormal behaviour [Not Recovered/Not Resolved]
